FAERS Safety Report 4567770-3 (Version None)
Quarter: 2005Q1

REPORT INFORMATION
  Report Type: 
  Country: None (occurrence: None)
  Receive Date: 20050127
  Receipt Date: 20041201
  Transmission Date: 20050727
  Serious: Yes (Life-Threatening, Hospitalization, Disabling, Other)
  Sender: FDA-Public Use
  Company Number: 2003188299DE

PATIENT
  Age: 69 Year
  Sex: Male

DRUGS (13)
  1. CAMPTOSAR [Suspect]
     Indication: RECTAL CANCER METASTATIC
     Dosage: 113 MG (CYCLIC), INTRAVENOUS
     Route: 042
     Dates: start: 20030715, end: 20030812
  2. GEFITINIB (GEFITINIB) [Suspect]
     Indication: RECTAL CANCER METASTATIC
  3. FLUOROURACIL [Suspect]
     Indication: RECTAL CANCER METASTATIC
     Dosage: 3000 MG (CYCLIC),
     Dates: start: 20030715, end: 20030812
  4. LEUCOVORIN CALCIUM [Concomitant]
  5. SERETIDE MITE (FLUTICASONE PROPIONATE, SALMETEROL XINAFOATE) [Concomitant]
  6. DYAZIDE [Concomitant]
  7. PROSTAGUTT (POPULUS EXTRACT, SERENOA REPENS EXTRACT, URTICA EXTRACT) [Concomitant]
  8. DIPYRONE TAB [Concomitant]
  9. LOPEARMIDE HYDROCHLORIDE (LOPERAMIDE HYDROCHLORIDE) [Concomitant]
  10. ALIZAPRIDE HYDROCHLORIDE (ALIZAPRIDE HYDROCHLORIDE) [Concomitant]
  11. TROPISETRON HYDROCHLORIDE (TROPISETRON HYDROCHLORIDE) [Concomitant]
  12. ATROPINE [Concomitant]
  13. PANTOPRAZOLE SODIUM [Concomitant]

REACTIONS (12)
  - ACNE [None]
  - ANOSMIA [None]
  - APHASIA [None]
  - CEREBRAL ARTERY EMBOLISM [None]
  - CEREBROVASCULAR ACCIDENT [None]
  - CONFUSIONAL STATE [None]
  - CONSTIPATION [None]
  - DIZZINESS [None]
  - PNEUMONIA [None]
  - PSYCHOTIC DISORDER [None]
  - ROSACEA [None]
  - VERTIGO [None]
